FAERS Safety Report 16330537 (Version 1)
Quarter: 2019Q2

REPORT INFORMATION
  Report Type: Spontaneous
  Country: US (occurrence: US)
  Receive Date: 20190520
  Receipt Date: 20190520
  Transmission Date: 20190711
  Serious: No
  Sender: FDA-Public Use
  Company Number: US-CONCORDIA PHARMACEUTICALS INC.-GSH201901-000109

PATIENT

DRUGS (2)
  1. HYDROXYCHLOROQUINE 200 MG TABLET [Suspect]
     Active Substance: HYDROXYCHLOROQUINE
     Dosage: STARTED TO TAKE ONLY HALF THE DAYS
  2. HYDROXYCHLOROQUINE 200 MG TABLET [Suspect]
     Active Substance: HYDROXYCHLOROQUINE
     Indication: SYSTEMIC LUPUS ERYTHEMATOSUS
     Dates: start: 20180312

REACTIONS (4)
  - Hepatic pain [Recovering/Resolving]
  - Arthralgia [Recovering/Resolving]
  - Burning sensation [Recovering/Resolving]
  - Overdose [Unknown]
